FAERS Safety Report 7908035-9 (Version None)
Quarter: 2011Q4

REPORT INFORMATION
  Report Type: 
  Country: None (occurrence: None)
  Receive Date: 20111110
  Receipt Date: 20111103
  Transmission Date: 20120403
  Serious: Yes (Other)
  Sender: FDA-Public Use
  Company Number: US-AMGEN-USASP2011057344

PATIENT
  Age: 40 Year
  Sex: Female

DRUGS (2)
  1. ENBREL [Suspect]
     Indication: RHEUMATOID ARTHRITIS
     Dosage: 50 MG, QWK
     Dates: start: 20110923, end: 20111028
  2. ENBREL [Suspect]
     Indication: SYSTEMIC LUPUS ERYTHEMATOSUS

REACTIONS (8)
  - COUGH [None]
  - INJECTION SITE ERYTHEMA [None]
  - CHEST PAIN [None]
  - VAGINAL HAEMORRHAGE [None]
  - SNEEZING [None]
  - RHINORRHOEA [None]
  - INJECTION SITE REACTION [None]
  - INJECTION SITE SCAR [None]
